FAERS Safety Report 5324383-3 (Version None)
Quarter: 2007Q2

REPORT INFORMATION
  Report Type: 
  Country: None (occurrence: None)
  Receive Date: 20070514
  Receipt Date: 20070507
  Transmission Date: 20071010
  Serious: Yes (Other)
  Sender: FDA-Public Use
  Company Number: CL-PFIZER INC-2007033114

PATIENT
  Age: 13 Year
  Sex: Female

DRUGS (1)
  1. GENOTONORM [Suspect]

REACTIONS (1)
  - OSTEOCHONDROSIS [None]
